FAERS Safety Report 8830950 (Version 3)
Quarter: 2013Q2

REPORT INFORMATION
  Report Type: Spontaneous
  Country: US (occurrence: US)
  Receive Date: 20121008
  Receipt Date: 20130430
  Transmission Date: 20140414
  Serious: No
  Sender: FDA-Public Use
  Company Number: US-ASTRAZENECA-2012SE70105

PATIENT
  Age: 41 Year
  Sex: Female
  Weight: 61.7 kg

DRUGS (14)
  1. SEROQUEL [Suspect]
     Indication: BIPOLAR DISORDER
     Route: 048
  2. SEROQUEL [Suspect]
     Indication: MOOD SWINGS
     Route: 048
  3. SEROQUEL [Suspect]
     Indication: SLEEP DISORDER
     Route: 048
  4. SEROQUEL [Suspect]
     Indication: BIPOLAR DISORDER
     Dosage: GENERIC
     Route: 048
  5. SEROQUEL [Suspect]
     Indication: MOOD SWINGS
     Dosage: GENERIC
     Route: 048
  6. SEROQUEL [Suspect]
     Indication: SLEEP DISORDER
     Dosage: GENERIC
     Route: 048
  7. SEROQUEL [Suspect]
     Indication: BIPOLAR DISORDER
     Dosage: GENERIC
     Route: 048
  8. SEROQUEL [Suspect]
     Indication: MOOD SWINGS
     Dosage: GENERIC
     Route: 048
  9. SEROQUEL [Suspect]
     Indication: SLEEP DISORDER
     Dosage: GENERIC
     Route: 048
  10. SEROQUEL [Suspect]
     Indication: BIPOLAR DISORDER
     Route: 048
  11. SEROQUEL [Suspect]
     Indication: MOOD SWINGS
     Route: 048
  12. SEROQUEL [Suspect]
     Indication: SLEEP DISORDER
     Route: 048
  13. KLONOPIN [Concomitant]
     Indication: ANXIETY
  14. EFFEXOR [Concomitant]
     Indication: DEPRESSION

REACTIONS (10)
  - Anxiety [Unknown]
  - Depression [Unknown]
  - Malaise [Unknown]
  - Migraine [Recovered/Resolved]
  - Adverse drug reaction [Unknown]
  - Terminal insomnia [Recovered/Resolved]
  - Headache [Unknown]
  - Insomnia [Unknown]
  - Constipation [Recovering/Resolving]
  - Drug dose omission [Unknown]
